FAERS Safety Report 26000508 (Version 1)
Quarter: 2025Q4

REPORT INFORMATION
  Report Type: Spontaneous
  Country: US (occurrence: None)
  Receive Date: 20251104
  Receipt Date: 20251104
  Transmission Date: 20260118
  Serious: Yes (Hospitalization)
  Sender: FDA-CTU
  Company Number: None

PATIENT
  Sex: Male
  Weight: 97.2 kg

DRUGS (4)
  1. AMBRISENTAN [Suspect]
     Active Substance: AMBRISENTAN
     Indication: Pulmonary arterial hypertension
     Dosage: FREQUENCY : DAILY;?
     Route: 048
     Dates: start: 20251007
  2. REMODULIN [Suspect]
     Active Substance: TREPROSTINIL
  3. TADALAFIL [Concomitant]
     Active Substance: TADALAFIL
  4. DEVICE [Suspect]
     Active Substance: DEVICE

REACTIONS (5)
  - Vascular complication associated with device [None]
  - Dizziness [None]
  - Nausea [None]
  - Vomiting [None]
  - Infusion site pruritus [None]
